FAERS Safety Report 24783769 (Version 1)
Quarter: 2024Q4

REPORT INFORMATION
  Report Type: Spontaneous
  Country: AT (occurrence: AT)
  Receive Date: 20241227
  Receipt Date: 20241227
  Transmission Date: 20250115
  Serious: Yes (Other)
  Sender: AMGEN
  Company Number: AT-AMGEN-AUTSP2024251201

PATIENT
  Age: 52 Year
  Sex: Female

DRUGS (5)
  1. KYPROLIS [Suspect]
     Active Substance: CARFILZOMIB
     Indication: Plasma cell leukaemia
     Dosage: 56 MILLIGRAM/SQ. METER, DAY 1, 8, 15
     Route: 040
     Dates: start: 20221028, end: 202312
  2. KYPROLIS [Suspect]
     Active Substance: CARFILZOMIB
     Indication: Off label use
  3. DARATUMUMAB [Suspect]
     Active Substance: DARATUMUMAB
     Indication: Plasma cell leukaemia
     Dosage: UNK
     Route: 065
  4. Lidaprim [Concomitant]
     Dosage: UNK, UP TO 90 DAYS AFTER ASCT
     Route: 065
  5. ACYCLOVIR [Concomitant]
     Active Substance: ACYCLOVIR
     Dosage: UNK, UP TO 90 DAYS AFTER ASCT
     Route: 065

REACTIONS (3)
  - Immunodeficiency [Unknown]
  - Tongue coated [Unknown]
  - Off label use [Unknown]
